FAERS Safety Report 26135184 (Version 1)
Quarter: 2025Q4

REPORT INFORMATION
  Report Type: Spontaneous
  Country: US (occurrence: US)
  Receive Date: 20251209
  Receipt Date: 20251209
  Transmission Date: 20260118
  Serious: Yes (Life-Threatening, Hospitalization, Other)
  Sender: GLENMARK
  Company Number: US-MLMSERVICE-20251121-PI722191-00150-1

PATIENT
  Age: 51 Year
  Sex: Male

DRUGS (1)
  1. FLUCONAZOLE [Suspect]
     Active Substance: FLUCONAZOLE
     Indication: Disseminated coccidioidomycosis
     Dosage: 400 MILLIGRAM, QD (LONG TERM)
     Route: 065

REACTIONS (2)
  - Hypotension [Recovering/Resolving]
  - Adrenal insufficiency [Recovering/Resolving]
